APPROVED DRUG PRODUCT: RALOXIFENE HYDROCHLORIDE
Active Ingredient: RALOXIFENE HYDROCHLORIDE
Strength: 60MG
Dosage Form/Route: TABLET;ORAL
Application: A090842 | Product #001 | TE Code: AB
Applicant: INVAGEN PHARMACEUTICALS INC
Approved: Sep 24, 2014 | RLD: No | RS: No | Type: RX